FAERS Safety Report 18408499 (Version 1)
Quarter: 2020Q4

REPORT INFORMATION
  Report Type: Spontaneous
  Country: US (occurrence: US)
  Receive Date: 20201020
  Receipt Date: 20201020
  Transmission Date: 20210114
  Serious: No
  Sender: FDA-Public Use
  Company Number: US-PERRIGO-20US006682

PATIENT
  Age: 74 Year
  Sex: Female
  Weight: 74.83 kg

DRUGS (3)
  1. PANTOPRAZOLE [Concomitant]
     Active Substance: PANTOPRAZOLE
     Indication: DYSPEPSIA
     Dosage: 40MG, UNK
     Route: 048
     Dates: start: 202002
  2. LISINOPRIL. [Concomitant]
     Active Substance: LISINOPRIL
     Indication: HYPERTENSION
     Dosage: UNK, UNK
     Route: 048
  3. IMIQUIMOD. [Suspect]
     Active Substance: IMIQUIMOD
     Indication: BASAL CELL CARCINOMA
     Dosage: 12.5 MG, NIGHTLY, FIVE DAYS WEEKLY
     Route: 061
     Dates: start: 20200305, end: 20200424

REACTIONS (5)
  - Pruritus [Recovering/Resolving]
  - Application site erythema [Recovering/Resolving]
  - Wrong technique in product usage process [Recovered/Resolved]
  - Application site warmth [Recovered/Resolved]
  - Application site discharge [Recovered/Resolved]

NARRATIVE: CASE EVENT DATE: 202003
